FAERS Safety Report 19508896 (Version 1)
Quarter: 2021Q3

REPORT INFORMATION
  Report Type: Spontaneous
  Country: US (occurrence: US)
  Receive Date: 20210708
  Receipt Date: 20210708
  Transmission Date: 20211014
  Serious: Yes (Death, Other)
  Sender: FDA-Public Use
  Company Number: US-PFIZER INC-2021846768

PATIENT
  Age: 64 Year
  Sex: Female
  Weight: 46.72 kg

DRUGS (1)
  1. VFEND [Suspect]
     Active Substance: VORICONAZOLE
     Indication: FUNGAL INFECTION
     Dosage: 200 MG, 2X/DAY
     Route: 048
     Dates: start: 202102, end: 20210510

REACTIONS (3)
  - Pancreatic failure [Unknown]
  - Transplant rejection [Fatal]
  - Drug ineffective [Fatal]
